FAERS Safety Report 14529555 (Version 2)
Quarter: 2018Q1

REPORT INFORMATION
  Report Type: Spontaneous
  Country: US (occurrence: US)
  Receive Date: 20180214
  Receipt Date: 20180301
  Transmission Date: 20180509
  Serious: Yes (Other)
  Sender: FDA-Public Use
  Company Number: US-PFIZER INC-2018059042

PATIENT
  Age: 67 Year
  Sex: Female
  Weight: 117.9 kg

DRUGS (2)
  1. EUCRISA [Suspect]
     Active Substance: CRISABOROLE
     Indication: VULVITIS
     Dosage: UNK, SINGLE (APPLIED ONCE)
     Dates: start: 20180207, end: 20180207
  2. EUCRISA [Suspect]
     Active Substance: CRISABOROLE
     Indication: ECZEMA
     Dosage: UNK, APPLIED A SMALL AMOUNT TO VAGINA
     Route: 067
     Dates: start: 20180208, end: 20180208

REACTIONS (6)
  - Product use complaint [Unknown]
  - Application site pain [Recovered/Resolved]
  - Dysuria [Unknown]
  - Haemorrhage [Not Recovered/Not Resolved]
  - Product use in unapproved indication [Unknown]
  - Product administered at inappropriate site [Unknown]

NARRATIVE: CASE EVENT DATE: 201802
